FAERS Safety Report 19712549 (Version 2)
Quarter: 2021Q3

REPORT INFORMATION
  Report Type: Spontaneous
  Country: CN (occurrence: CN)
  Receive Date: 20210817
  Receipt Date: 20210824
  Transmission Date: 20211014
  Serious: Yes (Other)
  Sender: FDA-Public Use
  Company Number: CN-ASTRAZENECA-2021A681746

PATIENT
  Sex: Male

DRUGS (2)
  1. NEXIUM [Suspect]
     Active Substance: ESOMEPRAZOLE MAGNESIUM
     Indication: DUODENAL ULCER
     Dosage: UNKNOWN
     Route: 048
     Dates: start: 20210804
  2. LAMIVUDINE. [Concomitant]
     Active Substance: LAMIVUDINE
     Route: 065

REACTIONS (7)
  - Hepatitis B [Unknown]
  - Myalgia [Recovered/Resolved]
  - Liver function test abnormal [Unknown]
  - Rash macular [Unknown]
  - Back pain [Unknown]
  - Urinary tract infection [Unknown]
  - Pain in extremity [Unknown]
